FAERS Safety Report 8046287-8 (Version None)
Quarter: 2012Q1

REPORT INFORMATION
  Report Type: 
  Country: None (occurrence: None)
  Receive Date: 20120113
  Receipt Date: 20120110
  Transmission Date: 20120608
  Serious: Yes (Other)
  Sender: FDA-Public Use
  Company Number: US-ROCHE-793567

PATIENT
  Sex: Female
  Weight: 81.72 kg

DRUGS (3)
  1. VITAMIN TAB [Concomitant]
  2. BUPROPION HYDROCHLORIDE [Concomitant]
  3. ACCUTANE [Suspect]
     Indication: ACNE
     Route: 065

REACTIONS (5)
  - HERNIA [None]
  - IRRITABLE BOWEL SYNDROME [None]
  - VISION BLURRED [None]
  - HYPERTENSION [None]
  - INFLAMMATORY BOWEL DISEASE [None]
